FAERS Safety Report 4331878-8 (Version None)
Quarter: 2004Q2

REPORT INFORMATION
  Report Type: 
  Country: None (occurrence: None)
  Receive Date: 20040405
  Receipt Date: 20040204
  Transmission Date: 20050107
  Serious: No
  Sender: FDA-Public Use
  Company Number: US-GLAXOSMITHKLINE-A0496653A

PATIENT
  Age: 7 Year
  Sex: Female
  Weight: 24.5 kg

DRUGS (2)
  1. FLOVENT [Suspect]
     Indication: COUGH
     Dosage: 220MCG TWICE PER DAY
     Route: 055
     Dates: start: 20031101, end: 20040130
  2. RHINOCORT [Concomitant]
     Route: 065
     Dates: start: 20031101, end: 20040211

REACTIONS (6)
  - BLOOD ALDOSTERONE INCREASED [None]
  - BLOOD PRESSURE INCREASED [None]
  - CUSHINGOID [None]
  - GROWTH RETARDATION [None]
  - SWELLING FACE [None]
  - WEIGHT INCREASED [None]
